FAERS Safety Report 4696976-8 (Version None)
Quarter: 2005Q2

REPORT INFORMATION
  Report Type: 
  Country: None (occurrence: None)
  Receive Date: 20050622
  Receipt Date: 20050608
  Transmission Date: 20051028
  Serious: Yes (Hospitalization, Other)
  Sender: FDA-Public Use
  Company Number: GBWYE726108JUN05

PATIENT
  Sex: Female
  Weight: 44 kg

DRUGS (7)
  1. ENBREL [Suspect]
     Indication: RHEUMATOID ARTHRITIS
     Route: 058
     Dates: start: 20041104, end: 20050315
  2. ACETAMINOPHEN [Concomitant]
  3. FOLIC ACID [Concomitant]
  4. CALCICHEW-D3 [Concomitant]
  5. BUSCOPAN [Concomitant]
  6. METOCLOPRAMIDE HYDROCHLORIDE [Concomitant]
  7. METHOTREXATE [Concomitant]

REACTIONS (3)
  - CONDITION AGGRAVATED [None]
  - DRUG INEFFECTIVE [None]
  - RHEUMATOID ARTHRITIS [None]
